FAERS Safety Report 22361594 (Version 2)
Quarter: 2023Q2

REPORT INFORMATION
  Report Type: Other
  Country: MX (occurrence: None)
  Receive Date: 20230524
  Receipt Date: 20230609
  Transmission Date: 20230722
  Serious: Yes (Other)
  Sender: FDA-Public Use
  Company Number: MX-ROCHE-3354271

PATIENT
  Sex: Female
  Weight: 54 kg

DRUGS (7)
  1. POLIVY [Suspect]
     Active Substance: POLATUZUMAB VEDOTIN-PIIQ
     Indication: Diffuse large B-cell lymphoma
     Route: 042
     Dates: start: 20221226
  2. DEXAMETHASONE [Concomitant]
     Active Substance: DEXAMETHASONE
     Indication: Premedication
     Dosage: PER CYCLE
     Route: 042
  3. DIPHENHYDRAMINE [Concomitant]
     Active Substance: DIPHENHYDRAMINE
     Indication: Premedication
     Dosage: PER CYCLE
     Route: 042
  4. ACETAMINOPHEN [Concomitant]
     Active Substance: ACETAMINOPHEN
     Indication: Premedication
     Dosage: PER CYCLE
     Route: 042
  5. ONDANSETRON [Concomitant]
     Active Substance: ONDANSETRON
     Indication: Premedication
     Dosage: FOR 6 DAYS
  6. CIPROFLOXACIN [Concomitant]
     Active Substance: CIPROFLOXACIN
     Indication: Premedication
     Dosage: 1 TABLET, FOR A MONTH
  7. ACYCLOVIR [Concomitant]
     Active Substance: ACYCLOVIR
     Indication: Premedication
     Dosage: 1 TABLET, FOR A MONTH

REACTIONS (8)
  - Acute kidney injury [Unknown]
  - Hypothyroidism [Unknown]
  - Drug hypersensitivity [Unknown]
  - Neutropenia [Unknown]
  - Hypercalcaemia of malignancy [Unknown]
  - Anaemia [Unknown]
  - Thrombocytopenia [Unknown]
  - Nausea [Unknown]
